FAERS Safety Report 18664827 (Version 2)
Quarter: 2021Q1

REPORT INFORMATION
  Report Type: Spontaneous
  Country: LV (occurrence: LV)
  Receive Date: 20201225
  Receipt Date: 20210206
  Transmission Date: 20210419
  Serious: Yes (Death, Hospitalization, Other)
  Sender: FDA-Public Use
  Company Number: LV-AMGEN-LVASP2020205562

PATIENT
  Age: 53 Year
  Sex: Female

DRUGS (3)
  1. BENDAMUSTINE [Suspect]
     Active Substance: BENDAMUSTINE
     Dosage: 100 MILLIGRAM
     Route: 065
  2. BENDAMUSTINE [Suspect]
     Active Substance: BENDAMUSTINE
     Indication: NON-HODGKIN^S LYMPHOMA
     Dosage: 150 MILLIGRAM
     Route: 065
     Dates: start: 2018
  3. FILGRASTIM [Suspect]
     Active Substance: FILGRASTIM
     Indication: HAEMATOPOIETIC STEM CELL MOBILISATION
     Dosage: 10 MICROGRAM/KILOGRAM, QD (6?DAY COURSE)
     Route: 065
     Dates: start: 201710, end: 2017

REACTIONS (11)
  - Neutropenia [Unknown]
  - Death [Fatal]
  - Abdominal lymphadenopathy [Unknown]
  - Progressive multifocal leukoencephalopathy [Unknown]
  - JC virus infection [Unknown]
  - Non-Hodgkin^s lymphoma recurrent [Unknown]
  - Thrombocytopenia [Unknown]
  - Lymphopenia [Unknown]
  - Herpes zoster [Unknown]
  - Alanine aminotransferase increased [Unknown]
  - General physical health deterioration [Unknown]

NARRATIVE: CASE EVENT DATE: 2018
